FAERS Safety Report 7786872-1 (Version None)
Quarter: 2011Q3

REPORT INFORMATION
  Report Type: 
  Country: None (occurrence: None)
  Receive Date: 20110927
  Receipt Date: 20110913
  Transmission Date: 20111222
  Serious: Yes (Life-Threatening, Hospitalization, Other)
  Sender: FDA-Public Use
  Company Number: 2011MA013477

PATIENT
  Age: 31 Year
  Sex: Female
  Weight: 50 kg

DRUGS (2)
  1. PROPRANOLOL HYDROCHLORIDE [Suspect]
     Indication: OVERDOSE
     Dosage: 3.6 G
  2. ETHANOL (ETHANOL) [Suspect]
     Indication: OVERDOSE

REACTIONS (20)
  - RESPIRATORY RATE DECREASED [None]
  - SUPRAVENTRICULAR TACHYCARDIA [None]
  - GRAND MAL CONVULSION [None]
  - ALCOHOL USE [None]
  - OXYGEN SATURATION DECREASED [None]
  - GENERAL PHYSICAL HEALTH DETERIORATION [None]
  - COMA [None]
  - CARDIOTOXICITY [None]
  - RHYTHM IDIOVENTRICULAR [None]
  - ELECTROCARDIOGRAM PR PROLONGATION [None]
  - BLOOD PRESSURE IMMEASURABLE [None]
  - TOXICITY TO VARIOUS AGENTS [None]
  - HEART RATE DECREASED [None]
  - ACCELERATED IDIOVENTRICULAR RHYTHM [None]
  - OVERDOSE [None]
  - BLOOD PRESSURE DECREASED [None]
  - TACHYARRHYTHMIA [None]
  - TACHYCARDIA [None]
  - ELECTROCARDIOGRAM QRS COMPLEX PROLONGED [None]
  - BLOOD GLUCOSE DECREASED [None]
